FAERS Safety Report 4393858-6 (Version None)
Quarter: 2004Q3

REPORT INFORMATION
  Report Type: 
  Country: None (occurrence: None)
  Receive Date: 20040702
  Receipt Date: 20040623
  Transmission Date: 20050211
  Serious: Yes (Death, Hospitalization)
  Sender: FDA-Public Use
  Company Number: 2004UW08972

PATIENT
  Age: 77 Year
  Sex: Male
  Weight: 68.0396 kg

DRUGS (14)
  1. IRESSA [Suspect]
     Indication: NON-SMALL CELL LUNG CANCER
     Dosage: 250 MG QD PO
     Route: 048
     Dates: start: 20020628
  2. ASPIRIN [Concomitant]
  3. CALCIUM [Concomitant]
  4. FOLIC ACID [Concomitant]
  5. GLUCOSAMINE [Concomitant]
  6. HYDROCODONE BITARTRATE AND ACETAMINOPHEN [Concomitant]
  7. LANOXIN [Concomitant]
  8. MULTIVITAMIN ^LAPPE^ [Concomitant]
  9. POTASSIUM [Concomitant]
  10. PREDNISONE [Concomitant]
  11. SLOW FE [Concomitant]
  12. SUPER B [Concomitant]
  13. VITAMIN E [Concomitant]
  14. ZINC [Concomitant]

REACTIONS (1)
  - PNEUMONIA [None]
